FAERS Safety Report 9894561 (Version 1)
Quarter: 2014Q1

REPORT INFORMATION
  Report Type: Spontaneous
  Country: US (occurrence: US)
  Receive Date: 20140213
  Receipt Date: 20140213
  Transmission Date: 20141002
  Serious: Yes (Death, Other)
  Sender: FDA-Public Use
  Company Number: US-OTSUKA-US-2014-10287

PATIENT
  Sex: Female

DRUGS (4)
  1. BUSULFEX [Suspect]
     Indication: BONE MARROW TRANSPLANT
     Dosage: 16 MG/KG, UNK
  2. CYCLOPHOSPHAMIDE [Suspect]
     Indication: BONE MARROW TRANSPLANT
     Dosage: 200 MG/KG, UNK
  3. ATG [Suspect]
     Indication: BONE MARROW TRANSPLANT
     Dosage: 10 MG/KG, UNK
  4. CYCLOSPORINE [Concomitant]
     Indication: GRAFT VERSUS HOST DISEASE

REACTIONS (4)
  - Pulmonary embolism [Fatal]
  - Hypoproteinaemia [Unknown]
  - Hypoalbuminaemia [Unknown]
  - Pneumococcal sepsis [Unknown]
